FAERS Safety Report 22178500 (Version 2)
Quarter: 2025Q3

REPORT INFORMATION
  Report Type: Spontaneous
  Country: EU (occurrence: EU)
  Receive Date: 20230405
  Receipt Date: 20250704
  Transmission Date: 20251020
  Serious: Yes (Other)
  Sender: TEVA
  Company Number: None

PATIENT
  Age: 62 Year
  Sex: Male
  Weight: 110 kg

DRUGS (2)
  1. TAMSULOSIN [Suspect]
     Active Substance: TAMSULOSIN
     Indication: Dysuria
     Dosage: 1 CAPSULE ONCE A DAY: MGA BRAND NAME NOT SPECIFIED
     Route: 065
     Dates: start: 20230117, end: 20230228
  2. NASONEX [Concomitant]
     Active Substance: MOMETASONE FUROATE
     Indication: Product used for unknown indication
     Route: 065

REACTIONS (7)
  - Suicidal ideation [Recovered/Resolved]
  - Confusional state [Recovered/Resolved]
  - Dyspnoea [Recovering/Resolving]
  - Insomnia [Recovering/Resolving]
  - Anxiety [Recovering/Resolving]
  - Nightmare [Recovering/Resolving]
  - Nasal congestion [Recovering/Resolving]
